FAERS Safety Report 23528076 (Version 1)
Quarter: 2024Q1

REPORT INFORMATION
  Report Type: Spontaneous
  Country: US (occurrence: None)
  Receive Date: 20240215
  Receipt Date: 20240215
  Transmission Date: 20240410
  Serious: No
  Sender: FDA-Public Use
  Company Number: None

PATIENT
  Age: 55 Year
  Sex: Male
  Weight: 98.43 kg

DRUGS (1)
  1. SKYRIZI [Suspect]
     Active Substance: RISANKIZUMAB-RZAA
     Indication: Psoriasis
     Dosage: INJECT 150MG (1 PEN) SUBCUTANEOUSLY  AT WEEK 0 AND  WEEK 4  AS  DIRECTED.
     Route: 058
     Dates: start: 202402

REACTIONS (1)
  - COVID-19 [None]
